FAERS Safety Report 18849691 (Version 1)
Quarter: 2021Q1

REPORT INFORMATION
  Report Type: Spontaneous
  Country: CA (occurrence: CA)
  Receive Date: 20210205
  Receipt Date: 20210205
  Transmission Date: 20210420
  Serious: Yes (Hospitalization)
  Sender: FDA-Public Use
  Company Number: CA-BAUSCH-BL-2021-003532

PATIENT
  Age: 61 Year
  Sex: Female

DRUGS (1)
  1. METFORMIN [Suspect]
     Active Substance: METFORMIN HYDROCHLORIDE
     Indication: DIABETES MELLITUS
     Route: 065

REACTIONS (7)
  - Seizure [Recovered/Resolved]
  - Dialysis [Recovered/Resolved]
  - Malaise [Recovered/Resolved]
  - Cardiac arrest [Recovered/Resolved]
  - Renal impairment [Recovered/Resolved]
  - Intensive care [Recovered/Resolved]
  - Lactic acidosis [Recovered/Resolved]
